FAERS Safety Report 17426400 (Version 1)
Quarter: 2020Q1

REPORT INFORMATION
  Report Type: Spontaneous
  Country: US (occurrence: US)
  Receive Date: 20200217
  Receipt Date: 20200217
  Transmission Date: 20200409
  Serious: No
  Sender: FDA-Public Use
  Company Number: US-ASTRAZENECA-2020SE19688

PATIENT
  Sex: Male
  Weight: 12.7 kg

DRUGS (4)
  1. AMOXICILLIN-CLAVULANAT [Concomitant]
  2. ALBUTEROL SULFATE. [Concomitant]
     Active Substance: ALBUTEROL SULFATE
  3. SYNAGIS [Suspect]
     Active Substance: PALIVIZUMAB
     Indication: LOW BIRTH WEIGHT BABY
     Route: 030
  4. BUDESONIDE. [Concomitant]
     Active Substance: BUDESONIDE
     Dosage: 0.25MG/2ML AMPUL-NEB

REACTIONS (1)
  - Conjunctivitis [Not Recovered/Not Resolved]
